FAERS Safety Report 20127001 (Version 5)
Quarter: 2022Q4

REPORT INFORMATION
  Report Type: Report from Study
  Country: CA (occurrence: CA)
  Receive Date: 20211129
  Receipt Date: 20221212
  Transmission Date: 20230113
  Serious: Yes (Hospitalization, Other)
  Sender: FDA-Public Use
  Company Number: CA-OTSUKA-2021_026714

PATIENT
  Age: 81 Year
  Sex: Male

DRUGS (4)
  1. CEDAZURIDINE\DECITABINE [Suspect]
     Active Substance: CEDAZURIDINE\DECITABINE
     Indication: Myelodysplastic syndrome
     Dosage: UNK, (35 MG OF DECITABINE AND 100 MG OF CEDAZURIDINE)
     Route: 065
     Dates: start: 20210414
  2. CEDAZURIDINE\DECITABINE [Suspect]
     Active Substance: CEDAZURIDINE\DECITABINE
     Dosage: DOSE DECREASED 4 DAYS, WITH 35 DAYS SCHEDULE
     Route: 065
  3. CEDAZURIDINE\DECITABINE [Suspect]
     Active Substance: CEDAZURIDINE\DECITABINE
     Dosage: 3 DAYS DOSAGE PER CYCLE
     Route: 065
  4. CEDAZURIDINE\DECITABINE [Suspect]
     Active Substance: CEDAZURIDINE\DECITABINE
     Dosage: UNK, EVERY 5 TO 6 WEEKS
     Route: 065

REACTIONS (6)
  - Platelet transfusion [Unknown]
  - Transfusion [Unknown]
  - Urinary tract infection [Unknown]
  - Platelet count decreased [Unknown]
  - White blood cell count decreased [Unknown]
  - Inappropriate schedule of product administration [Unknown]

NARRATIVE: CASE EVENT DATE: 20210801
